FAERS Safety Report 10008801 (Version 1)
Quarter: 2014Q1

REPORT INFORMATION
  Report Type: Spontaneous
  Country: US (occurrence: US)
  Receive Date: 20140312
  Receipt Date: 20140312
  Transmission Date: 20141002
  Serious: No
  Sender: FDA-Public Use
  Company Number: US-INCYTE CORPORATION-2012IN000732

PATIENT
  Age: 59 Year
  Sex: Female

DRUGS (8)
  1. JAKAFI [Suspect]
     Indication: MYELOFIBROSIS
     Dosage: 15 MG, BID
     Route: 048
     Dates: start: 20120301, end: 20120401
  2. LODINE [Concomitant]
  3. FOSAMAX [Concomitant]
  4. CHOLESTYRAMINE [Concomitant]
  5. MULTIVITAMIN [Concomitant]
  6. CALCIUM [Concomitant]
  7. VITAMIN D [Concomitant]
  8. ASPIRIN [Concomitant]
     Dosage: 325 MG

REACTIONS (2)
  - Back pain [Unknown]
  - Pain in extremity [Unknown]
